FAERS Safety Report 19000971 (Version 7)
Quarter: 2022Q1

REPORT INFORMATION
  Report Type: Spontaneous
  Country: JP (occurrence: JP)
  Receive Date: 20210311
  Receipt Date: 20220218
  Transmission Date: 20220424
  Serious: Yes (Death, Life-Threatening, Hospitalization, Other)
  Sender: FDA-Public Use
  Company Number: JP-BRISTOL-MYERS SQUIBB COMPANY-BMS-2021-023316

PATIENT
  Age: 8 Decade
  Sex: Male
  Weight: 40 kg

DRUGS (6)
  1. YERVOY [Suspect]
     Active Substance: IPILIMUMAB
     Indication: Rectosigmoid cancer
     Dosage: 38 MILLIGRAM
     Route: 041
     Dates: start: 20201118, end: 20210127
  2. OPDIVO [Suspect]
     Active Substance: NIVOLUMAB
     Indication: Rectosigmoid cancer
     Dosage: 230 MILLIGRAM
     Route: 041
     Dates: start: 20201118, end: 20210127
  3. POLARAMINE [Concomitant]
     Active Substance: DEXCHLORPHENIRAMINE MALEATE
     Indication: Prophylaxis
     Dosage: 5 MILLIGRAM, QD
     Route: 042
     Dates: start: 20201118, end: 20210127
  4. BENIDIPINE HYDROCHLORIDE [Concomitant]
     Active Substance: BENIDIPINE HYDROCHLORIDE
     Indication: Product used for unknown indication
     Dosage: 4 MILLIGRAM, QD
     Route: 048
     Dates: start: 20200605
  5. LANSOPRAZOLE [Concomitant]
     Active Substance: LANSOPRAZOLE
     Indication: Product used for unknown indication
     Dosage: 15 MILLIGRAM, QD
     Route: 048
     Dates: start: 20200207
  6. SILODOSIN [Concomitant]
     Active Substance: SILODOSIN
     Indication: Product used for unknown indication
     Dosage: 40 MILLIGRAM, QD
     Route: 048
     Dates: start: 20200611

REACTIONS (6)
  - Cardiac failure [Fatal]
  - Interstitial lung disease [Fatal]
  - Pulmonary congestion [Not Recovered/Not Resolved]
  - Prerenal failure [Recovering/Resolving]
  - Colitis [Recovering/Resolving]
  - Myocardial infarction [Unknown]

NARRATIVE: CASE EVENT DATE: 20210214
